FAERS Safety Report 7464976-0 (Version None)
Quarter: 2011Q2

REPORT INFORMATION
  Report Type: 
  Country: None (occurrence: None)
  Receive Date: 20110509
  Receipt Date: 20110426
  Transmission Date: 20111010
  Serious: No
  Sender: FDA-Public Use
  Company Number: US-JNJFOC-20110304678

PATIENT
  Sex: Female
  Weight: 95.26 kg

DRUGS (5)
  1. CYMBALTA [Concomitant]
     Indication: DEPRESSION
     Route: 048
  2. MORPHINE [Concomitant]
     Indication: BREAKTHROUGH PAIN
     Route: 048
  3. CLONAZEPAM [Concomitant]
     Indication: ANXIETY
     Route: 048
  4. DURAGESIC-100 [Suspect]
     Indication: PAIN
     Route: 062
  5. DURAGESIC-100 [Suspect]
     Indication: PRODUCT USED FOR UNKNOWN INDICATION
     Route: 062

REACTIONS (5)
  - BEDRIDDEN [None]
  - PAIN [None]
  - TREATMENT NONCOMPLIANCE [None]
  - INCORRECT DOSE ADMINISTERED [None]
  - WITHDRAWAL SYNDROME [None]
